FAERS Safety Report 4346559-4 (Version None)
Quarter: 2004Q2

REPORT INFORMATION
  Report Type: 
  Country: None (occurrence: None)
  Receive Date: 20040426
  Receipt Date: 20040130
  Transmission Date: 20050107
  Serious: No
  Sender: FDA-Public Use
  Company Number: US-BRISTOL-MYERS SQUIBB COMPANY-12493573

PATIENT
  Age: 80 Year
  Sex: Male
  Weight: 87 kg

DRUGS (8)
  1. CARBOPLATIN [Suspect]
     Indication: NON-SMALL CELL LUNG CANCER
     Route: 042
     Dates: start: 20040123, end: 20040123
  2. PROSCAR [Concomitant]
  3. FLONASE [Concomitant]
  4. COMPAZINE [Concomitant]
  5. ATIVAN [Concomitant]
  6. LORTAB [Concomitant]
  7. MIRALAX [Concomitant]
  8. XYLOCAINE VISCOUS [Concomitant]

REACTIONS (1)
  - INJECTION SITE REACTION [None]
